FAERS Safety Report 20536597 (Version 1)
Quarter: 2022Q1

REPORT INFORMATION
  Report Type: Report from Study
  Country: JP (occurrence: JP)
  Receive Date: 20220302
  Receipt Date: 20220302
  Transmission Date: 20220424
  Serious: Yes (Hospitalization)
  Sender: FDA-Public Use
  Company Number: JP-JNJFOC-20211011752

PATIENT
  Age: 65 Year
  Sex: Male
  Weight: 67 kg

DRUGS (6)
  1. DARZALEX [Suspect]
     Active Substance: DARATUMUMAB
     Indication: Plasma cell myeloma
     Route: 041
     Dates: start: 20190709, end: 20190709
  2. DARZALEX [Suspect]
     Active Substance: DARATUMUMAB
     Route: 041
     Dates: start: 20191001, end: 20191001
  3. REVLIMID [Suspect]
     Active Substance: LENALIDOMIDE
     Indication: Plasma cell myeloma
     Route: 048
     Dates: start: 20190709, end: 20190729
  4. REVLIMID [Suspect]
     Active Substance: LENALIDOMIDE
     Indication: Plasma cell myeloma
     Route: 048
     Dates: start: 20191021, end: 20191021
  5. AMITIZA [Suspect]
     Active Substance: LUBIPROSTONE
     Indication: Prophylaxis
     Route: 048
     Dates: end: 20190802
  6. LENADEX [Suspect]
     Active Substance: DEXAMETHASONE ACETATE
     Indication: Plasma cell myeloma
     Route: 048
     Dates: start: 20190709

REACTIONS (1)
  - Enteritis infectious [Recovering/Resolving]

NARRATIVE: CASE EVENT DATE: 20190729
